FAERS Safety Report 19840080 (Version 1)
Quarter: 2021Q3

REPORT INFORMATION
  Report Type: Spontaneous
  Country: ES (occurrence: ES)
  Receive Date: 20210916
  Receipt Date: 20210916
  Transmission Date: 20211014
  Serious: Yes (Hospitalization)
  Sender: FDA-Public Use
  Company Number: NVSC2021ES208627

PATIENT
  Age: 12 Year
  Sex: Female

DRUGS (1)
  1. EVEROLIMUS. [Suspect]
     Active Substance: EVEROLIMUS
     Indication: PRODUCT USED FOR UNKNOWN INDICATION
     Dosage: 0.8 MG/M2, Q12H
     Route: 048

REACTIONS (4)
  - Lymphopenia [Unknown]
  - Drug ineffective [Unknown]
  - Respiratory tract infection [Unknown]
  - Condition aggravated [Unknown]
